FAERS Safety Report 18279768 (Version 1)
Quarter: 2020Q3

REPORT INFORMATION
  Report Type: Spontaneous
  Country: JP (occurrence: JP)
  Receive Date: 20200918
  Receipt Date: 20200918
  Transmission Date: 20201103
  Serious: Yes (Other)
  Sender: FDA-Public Use
  Company Number: JP-SA-2020SA253345

PATIENT

DRUGS (6)
  1. OXALIPLATIN. [Suspect]
     Active Substance: OXALIPLATIN
     Indication: GASTRIC CANCER
     Dosage: 100 MG/M2 ON DAY 1
  2. PACLITAXEL ALBUMIN [Suspect]
     Active Substance: PACLITAXEL
     Indication: GASTRIC CANCER
     Dosage: 50?80 MG/M2 ON DAYS 1 AND 8
  3. PACLITAXEL ALBUMIN [Suspect]
     Active Substance: PACLITAXEL
     Indication: METASTASES TO PERITONEUM
  4. GIMERACIL;OTERACIL POTASSIUM;TEGAFUR [Suspect]
     Active Substance: GIMERACIL\OTERACIL\TEGAFUR
     Indication: METASTASES TO PERITONEUM
  5. OXALIPLATIN. [Suspect]
     Active Substance: OXALIPLATIN
     Indication: METASTASES TO PERITONEUM
  6. GIMERACIL;OTERACIL POTASSIUM;TEGAFUR [Suspect]
     Active Substance: GIMERACIL\OTERACIL\TEGAFUR
     Indication: GASTRIC CANCER
     Dosage: 80 MG/M2, QD

REACTIONS (1)
  - Acute myocardial infarction [Recovered/Resolved]
